FAERS Safety Report 6286803-X (Version None)
Quarter: 2009Q3

REPORT INFORMATION
  Report Type: 
  Country: None (occurrence: None)
  Receive Date: 20090728
  Receipt Date: 20090717
  Transmission Date: 20100115
  Serious: No
  Sender: FDA-Public Use
  Company Number: BR-AVENTIS-200913186GDDC

PATIENT
  Age: 10 Year
  Sex: Female
  Weight: 29 kg

DRUGS (1)
  1. LANTUS [Suspect]
     Dosage: DOSE: 11-12
     Route: 058
     Dates: start: 20090128

REACTIONS (6)
  - BLOOD GLUCOSE DECREASED [None]
  - HEADACHE [None]
  - INJECTION SITE PAIN [None]
  - OFF LABEL USE [None]
  - PRURITUS [None]
  - WEIGHT INCREASED [None]
